FAERS Safety Report 8511359-8 (Version None)
Quarter: 2012Q3

REPORT INFORMATION
  Report Type: 
  Country: None (occurrence: None)
  Receive Date: 20120716
  Receipt Date: 20120710
  Transmission Date: 20120928
  Serious: Yes (Death, Hospitalization)
  Sender: FDA-Public Use
  Company Number: US-ASTELLAS-2012US005249

PATIENT
  Sex: Female

DRUGS (2)
  1. ERLOTINIB HYDROCHLORIDE [Suspect]
     Indication: TONGUE NEOPLASM MALIGNANT STAGE UNSPECIFIED
     Dosage: 100 MG, UID/QD
     Route: 048
     Dates: start: 20120221, end: 20120401
  2. ERLOTINIB HYDROCHLORIDE [Suspect]
     Indication: HEAD AND NECK CANCER METASTATIC
     Dosage: 100 MG, UID/QD
     Route: 048
     Dates: end: 20120501

REACTIONS (7)
  - KLEBSIELLA BACTERAEMIA [None]
  - OFF LABEL USE [None]
  - LEUKOPENIA [None]
  - STOMATITIS [None]
  - OEDEMA PERIPHERAL [None]
  - PNEUMONIA KLEBSIELLA [None]
  - PNEUMONIA ASPIRATION [None]
